FAERS Safety Report 7578754-5 (Version None)
Quarter: 2011Q2

REPORT INFORMATION
  Report Type: 
  Country: None (occurrence: None)
  Receive Date: 20110628
  Receipt Date: 20110624
  Transmission Date: 20111010
  Serious: No
  Sender: FDA-Public Use
  Company Number: US-PFIZER INC-2011141284

PATIENT
  Sex: Female

DRUGS (2)
  1. AZITHROMYCIN [Suspect]
     Indication: COUGH
  2. AZITHROMYCIN [Suspect]
     Indication: NASOPHARYNGITIS
     Dosage: 250 MG, FREQUENCY UNKNOWN
     Dates: start: 20110623

REACTIONS (2)
  - FATIGUE [None]
  - FEELING ABNORMAL [None]
